FAERS Safety Report 8288870-0 (Version None)
Quarter: 2012Q2

REPORT INFORMATION
  Report Type: 
  Country: None (occurrence: None)
  Receive Date: 20120411
  Receipt Date: 20120327
  Transmission Date: 20120825
  Serious: Yes (Hospitalization)
  Sender: FDA-Public Use
  Company Number: 2012-146

PATIENT
  Age: 47 Year
  Sex: Female

DRUGS (3)
  1. PRIALT [Suspect]
     Dosage: 0.3 UG, ONCE/HOUR, INTRATHECAL 0.018 UG, ONCE/HOUR, INTRATHECAL
     Route: 037
     Dates: start: 20120322, end: 20120327
  2. PRIALT [Suspect]
     Dosage: 0.3 UG, ONCE/HOUR, INTRATHECAL 0.018 UG, ONCE/HOUR, INTRATHECAL
     Route: 037
     Dates: start: 20120327
  3. FENTANYL [Suspect]
     Dosage: UNK UG, ONCE/HOUR, INTRATHECAL
     Route: 037

REACTIONS (5)
  - ANAEMIA [None]
  - DEHYDRATION [None]
  - NAUSEA [None]
  - VOMITING [None]
  - CONFUSIONAL STATE [None]
